FAERS Safety Report 6429851-9 (Version None)
Quarter: 2009Q4

REPORT INFORMATION
  Report Type: 
  Country: None (occurrence: None)
  Receive Date: 20091104
  Receipt Date: 20091104
  Transmission Date: 20100525
  Serious: Yes (Hospitalization)
  Sender: FDA-Public Use
  Company Number: None

PATIENT
  Age: 29 Year
  Sex: Female
  Weight: 79.8 kg

DRUGS (1)
  1. ACETAMINOPHEN AND HYDROCODONE BITARTRATE [Suspect]
     Indication: PAIN
     Dosage: ORAL TAB OTHER PO
     Route: 048
     Dates: start: 20090512, end: 20090512

REACTIONS (3)
  - NAUSEA [None]
  - OVERDOSE [None]
  - VOMITING [None]
